FAERS Safety Report 6235724-7 (Version None)
Quarter: 2009Q2

REPORT INFORMATION
  Report Type: 
  Country: None (occurrence: None)
  Receive Date: 20090619
  Receipt Date: 20070509
  Transmission Date: 20091009
  Serious: Yes (Other)
  Sender: FDA-Public Use
  Company Number: US-ASTRAZENECA-2006UW24982

PATIENT
  Age: 37 Year
  Sex: Male
  Weight: 122 kg

DRUGS (20)
  1. SEROQUEL [Suspect]
     Indication: DEPRESSION
     Dosage: 25-100 MG
     Route: 048
     Dates: start: 20030306, end: 20040202
  2. SEROQUEL [Suspect]
     Indication: HALLUCINATION
     Dosage: 25-100 MG
     Route: 048
     Dates: start: 20030306, end: 20040202
  3. SEROQUEL [Suspect]
     Indication: SLEEP DISORDER
     Dosage: 25-100 MG
     Route: 048
     Dates: start: 20030306, end: 20040202
  4. SEROQUEL [Suspect]
     Dosage: 25 MG AND 100 MG
     Route: 048
     Dates: start: 20031201, end: 20050701
  5. SEROQUEL [Suspect]
     Dosage: 25 MG AND 100 MG
     Route: 048
     Dates: start: 20031201, end: 20050701
  6. SEROQUEL [Suspect]
     Dosage: 25 MG AND 100 MG
     Route: 048
     Dates: start: 20031201, end: 20050701
  7. RISPERDAL [Suspect]
     Dates: start: 20050701
  8. HALDOL [Concomitant]
     Dates: start: 20061001
  9. PAXIL [Concomitant]
     Indication: INSOMNIA
     Dates: start: 19990101, end: 20060101
  10. PAXIL [Concomitant]
     Indication: NIGHTMARE
     Dates: start: 19990101, end: 20060101
  11. PAXIL [Concomitant]
     Dosage: 10-60 MG
     Dates: start: 20010316
  12. PAXIL [Concomitant]
     Dosage: 10-60 MG
     Dates: start: 20010316
  13. CELEXA [Concomitant]
  14. TRAZODONE HCL [Concomitant]
     Dates: start: 20020101, end: 20060101
  15. TRAZODONE HCL [Concomitant]
     Dosage: 50-150 MG
     Route: 048
     Dates: start: 20040202
  16. ELEVIL [Concomitant]
     Dates: start: 20030101, end: 20030201
  17. KLONOPIN [Concomitant]
     Dates: start: 20000101
  18. DOXEPIN [Concomitant]
     Dates: start: 20060401
  19. DEPAKOTE [Concomitant]
     Dates: start: 20050101
  20. CLONAZEPAM [Concomitant]
     Indication: ANXIETY
     Dosage: 1-5 MG
     Route: 048
     Dates: start: 20000603

REACTIONS (2)
  - DIABETES MELLITUS [None]
  - DIABETIC RETINOPATHY [None]
